FAERS Safety Report 4340467-0 (Version None)
Quarter: 2004Q2

REPORT INFORMATION
  Report Type: 
  Country: None (occurrence: None)
  Receive Date: 20040414
  Receipt Date: 20040406
  Transmission Date: 20050107
  Serious: Yes (Hospitalization)
  Sender: FDA-Public Use
  Company Number: 03P-150-0245037-00

PATIENT
  Age: 47 Year
  Sex: Female

DRUGS (1)
  1. MERIDIA [Suspect]
     Indication: OVERWEIGHT
     Dosage: 10 MG, 1 IN 1 D, ORAL
     Route: 048
     Dates: start: 20030804, end: 20031027

REACTIONS (10)
  - DIZZINESS [None]
  - FATIGUE [None]
  - GLOMERULONEPHRITIS [None]
  - MIDDLE INSOMNIA [None]
  - NASOPHARYNGEAL DISORDER [None]
  - NEPHRITIS INTERSTITIAL [None]
  - NEPHROPATHY TOXIC [None]
  - RENAL DISORDER [None]
  - URINARY TRACT DISORDER [None]
  - WEIGHT INCREASED [None]
